FAERS Safety Report 25265028 (Version 1)
Quarter: 2025Q2

REPORT INFORMATION
  Report Type: Report from Study
  Country: CA (occurrence: CA)
  Receive Date: 20250502
  Receipt Date: 20250502
  Transmission Date: 20250716
  Serious: Yes (Hospitalization)
  Sender: OTSUKA
  Company Number: CA-MMM-Otsuka-4CSIOX1B

PATIENT
  Age: 36 Year
  Sex: Female

DRUGS (2)
  1. TOLVAPTAN [Suspect]
     Active Substance: TOLVAPTAN
     Indication: Congenital cystic kidney disease
     Dosage: 45 MG, DAILY
     Route: 048
     Dates: start: 20250424
  2. TOLVAPTAN [Suspect]
     Active Substance: TOLVAPTAN
     Dosage: 15 MG, DAILY
     Route: 048
     Dates: start: 20250424

REACTIONS (4)
  - Infection [Unknown]
  - Chills [Unknown]
  - Dysuria [Unknown]
  - Pyrexia [Unknown]

NARRATIVE: CASE EVENT DATE: 20250427
